FAERS Safety Report 23822011 (Version 1)
Quarter: 2024Q2

REPORT INFORMATION
  Report Type: Spontaneous
  Country: FR (occurrence: FR)
  Receive Date: 20240506
  Receipt Date: 20240506
  Transmission Date: 20240716
  Serious: Yes (Hospitalization, Disabling, Other)
  Sender: FDA-Public Use
  Company Number: FR-AUROBINDO-AUR-APL-2024-013204

PATIENT
  Age: 38 Year
  Sex: Female

DRUGS (21)
  1. ALPRAZOLAM [Suspect]
     Active Substance: ALPRAZOLAM
     Indication: Product used for unknown indication
     Dosage: OCCASIONALLY TOOK
     Route: 065
  2. AUGMENTIN [Suspect]
     Active Substance: AMOXICILLIN\CLAVULANATE POTASSIUM
     Indication: Product used for unknown indication
     Dosage: UNK
     Route: 065
  3. FLUTICASONE FUROATE [Suspect]
     Active Substance: FLUTICASONE FUROATE
     Indication: Product used for unknown indication
     Dosage: 27.5 MICROGRAMS/SPRAY, NASAL SPRAY SUSPENSION
     Route: 065
  4. TROLAMINE [Suspect]
     Active Substance: TROLAMINE
     Indication: Product used for unknown indication
     Dosage: UNK
     Route: 065
  5. BORIC ACID\SODIUM BORATE [Suspect]
     Active Substance: BORIC ACID\SODIUM BORATE
     Indication: Product used for unknown indication
     Dosage: UNK
     Route: 065
  6. DAFALGAN [Suspect]
     Active Substance: ACETAMINOPHEN
     Indication: Product used for unknown indication
     Dosage: UNK
     Route: 065
  7. DEXAMETHASONE SODIUM PHOSPHATE [Suspect]
     Active Substance: DEXAMETHASONE PHOSPHATE\DEXAMETHASONE SODIUM PHOSPHATE
     Indication: Product used for unknown indication
     Dosage: UNK
     Route: 065
  8. DOLIPRANE [Suspect]
     Active Substance: ACETAMINOPHEN
     Indication: Product used for unknown indication
     Dosage: UNK
     Route: 065
  9. DUPHASTON [Suspect]
     Active Substance: DYDROGESTERONE
     Indication: Product used for unknown indication
     Dosage: UNK
     Route: 065
  10. AMITRIPTYLINE HYDROCHLORIDE [Suspect]
     Active Substance: AMITRIPTYLINE HYDROCHLORIDE
     Indication: Product used for unknown indication
     Dosage: UNK
     Route: 065
  11. NOMEGESTROL ACETATE [Suspect]
     Active Substance: NOMEGESTROL ACETATE
     Indication: Product used for unknown indication
     Dosage: UNK
     Route: 048
  12. NOMEGESTROL [Suspect]
     Active Substance: NOMEGESTROL
     Indication: Product used for unknown indication
     Dosage: NOMEGESTROL ARROW 5 MG SCORED TABLET
     Route: 048
     Dates: end: 200302
  13. NOMEGESTROL [Suspect]
     Active Substance: NOMEGESTROL
     Indication: Product used for unknown indication
     Dosage: UNK
     Route: 048
  14. NOMEGESTROL ACETATE [Suspect]
     Active Substance: NOMEGESTROL ACETATE
     Indication: Product used for unknown indication
     Dosage: UNK
     Route: 048
  15. NOMEGESTROL ACETATE [Suspect]
     Active Substance: NOMEGESTROL ACETATE
     Indication: Product used for unknown indication
     Dosage: UNK
     Route: 048
  16. ACETAMINOPHEN [Suspect]
     Active Substance: ACETAMINOPHEN
     Indication: Product used for unknown indication
     Dosage: UNK
     Route: 065
  17. CLOPIDOGREL BISULFATE [Suspect]
     Active Substance: CLOPIDOGREL BISULFATE
     Indication: Product used for unknown indication
     Dosage: UNK
     Route: 065
  18. RHINOCORT [Suspect]
     Active Substance: BUDESONIDE
     Indication: Product used for unknown indication
     Dosage: UNK
     Route: 065
  19. VIMPAT [Suspect]
     Active Substance: LACOSAMIDE
     Indication: Product used for unknown indication
     Dosage: 100MG DAILY (20MG MORNING AND EVENING), WITH AN INCREASE TO 200 MG DAILY (100MG MORNING AND EVENING)
     Route: 065
     Dates: start: 20190722, end: 20190827
  20. VIMPAT [Suspect]
     Active Substance: LACOSAMIDE
     Dosage: 100MG MORNING AND EVENING WELL
     Route: 065
  21. VIMPAT [Suspect]
     Active Substance: LACOSAMIDE
     Dosage: 50MG TWICE DAILY FOR 1 WEEK, THEN 100MG TWICE A DAY FOR 1 WEEK, THEN 150MG TWICE A DAY FOR 1 WEEK AN
     Route: 065

REACTIONS (2)
  - Meningioma [Recovered/Resolved with Sequelae]
  - Meningioma surgery [Unknown]

NARRATIVE: CASE EVENT DATE: 20110701
